FAERS Safety Report 10209763 (Version 1)
Quarter: 2014Q2

REPORT INFORMATION
  Report Type: Spontaneous
  Country: US (occurrence: US)
  Receive Date: 20140602
  Receipt Date: 20140602
  Transmission Date: 20141212
  Serious: Yes (Death)
  Sender: FDA-Public Use
  Company Number: US-BRISTOL-MYERS SQUIBB COMPANY-20843009

PATIENT
  Age: 78 Year
  Sex: Female

DRUGS (1)
  1. SPRYCEL [Suspect]
     Dosage: 1DF = 70 UNIT NOS
     Route: 048

REACTIONS (1)
  - Death [Fatal]
